FAERS Safety Report 24124160 (Version 1)
Quarter: 2024Q3

REPORT INFORMATION
  Report Type: Report from Study
  Country: US (occurrence: US)
  Receive Date: 20240723
  Receipt Date: 20240723
  Transmission Date: 20241017
  Serious: Yes (Other)
  Sender: UCB
  Company Number: US-UCBSA-2024024793

PATIENT
  Sex: Female
  Weight: 63.5 kg

DRUGS (1)
  1. ROTIGOTINE [Suspect]
     Active Substance: ROTIGOTINE
     Indication: Product used for unknown indication
     Dosage: 8 MILLIGRAM, ONCE DAILY (QD) (1 PACK DAILY)

REACTIONS (3)
  - Parkinson^s disease [Unknown]
  - Inability to afford medication [Unknown]
  - Therapy interrupted [Unknown]
